FAERS Safety Report 6704407-9 (Version None)
Quarter: 2010Q2

REPORT INFORMATION
  Report Type: 
  Country: None (occurrence: None)
  Receive Date: 20100423
  Receipt Date: 20100202
  Transmission Date: 20101027
  Serious: No
  Sender: FDA-Public Use
  Company Number: ALL1-2010-00599

PATIENT
  Age: 10 Year
  Sex: Male

DRUGS (3)
  1. VYVANSE [Suspect]
     Indication: DRUG USE FOR UNKNOWN INDICATION
     Dosage: 20 MG, 1X/DAY;QD, ORAL, 30 MG 1X/DAY:QD, ORAL, 40 MG ORAL
     Route: 048
     Dates: start: 20100129, end: 20100101
  2. VYVANSE [Suspect]
     Indication: DRUG USE FOR UNKNOWN INDICATION
     Dosage: 20 MG, 1X/DAY;QD, ORAL, 30 MG 1X/DAY:QD, ORAL, 40 MG ORAL
     Route: 048
     Dates: end: 20100128
  3. VYVANSE [Suspect]
     Indication: DRUG USE FOR UNKNOWN INDICATION
     Dosage: 20 MG, 1X/DAY;QD, ORAL, 30 MG 1X/DAY:QD, ORAL, 40 MG ORAL
     Route: 048
     Dates: start: 20090801

REACTIONS (4)
  - CRYING [None]
  - DEPRESSED MOOD [None]
  - NERVOUSNESS [None]
  - SOCIAL AVOIDANT BEHAVIOUR [None]
